FAERS Safety Report 21359915 (Version 2)
Quarter: 2022Q4

REPORT INFORMATION
  Report Type: Spontaneous
  Country: US (occurrence: US)
  Receive Date: 20220921
  Receipt Date: 20221007
  Transmission Date: 20230113
  Serious: No
  Sender: FDA-Public Use
  Company Number: US-009507513-2209USA004560

PATIENT
  Age: 90 Year
  Sex: Male

DRUGS (5)
  1. MOLNUPIRAVIR [Suspect]
     Active Substance: MOLNUPIRAVIR
     Indication: COVID-19 treatment
     Dosage: 200MG/ 8X DAILY
     Route: 048
     Dates: start: 20220902, end: 20220907
  2. PRINIVIL [Suspect]
     Active Substance: LISINOPRIL
  3. ZOCOR [Suspect]
     Active Substance: SIMVASTATIN
  4. XARELTO [Suspect]
     Active Substance: RIVAROXABAN
  5. CARVEDILOL [Suspect]
     Active Substance: CARVEDILOL

REACTIONS (5)
  - SARS-CoV-2 test positive [Not Recovered/Not Resolved]
  - Drug ineffective [Not Recovered/Not Resolved]
  - Malaise [Not Recovered/Not Resolved]
  - Diarrhoea [Not Recovered/Not Resolved]
  - Inappropriate schedule of product administration [Unknown]

NARRATIVE: CASE EVENT DATE: 20220901
